FAERS Safety Report 5621183-1 (Version None)
Quarter: 2008Q1

REPORT INFORMATION
  Report Type: 
  Country: None (occurrence: None)
  Receive Date: 20080114
  Receipt Date: 20061130
  Transmission Date: 20080703
  Serious: Yes (Other)
  Sender: FDA-Public Use
  Company Number: A03200607352

PATIENT
  Age: 51 Year
  Sex: Male

DRUGS (4)
  1. PLAVIX [Suspect]
     Indication: CATHETERISATION CARDIAC
     Dosage: 75 MG QD - ORAL
     Route: 048
     Dates: start: 20061113, end: 20061101
  2. PLAVIX [Suspect]
     Indication: STENT PLACEMENT
     Dosage: 75 MG QD - ORAL
     Route: 048
     Dates: start: 20061113, end: 20061101
  3. PLAVIX [Suspect]
     Indication: CATHETERISATION CARDIAC
     Dosage: 37.5 MG QD - ORAL
     Route: 048
     Dates: start: 20061101
  4. PLAVIX [Suspect]
     Indication: STENT PLACEMENT
     Dosage: 37.5 MG QD - ORAL
     Route: 048
     Dates: start: 20061101

REACTIONS (4)
  - GENERALISED OEDEMA [None]
  - MUSCULOSKELETAL STIFFNESS [None]
  - PRURITUS GENERALISED [None]
  - URTICARIA [None]
